FAERS Safety Report 15421716 (Version 1)
Quarter: 2018Q4

REPORT INFORMATION
  Report Type: Spontaneous
  Country: US (occurrence: US)
  Receive Date: 20180924
  Receipt Date: 20180924
  Transmission Date: 20190204
  Serious: No
  Sender: FDA-Public Use
  Company Number: US-ALLERGAN-1832629US

PATIENT
  Sex: Male

DRUGS (8)
  1. LINZESS [Suspect]
     Active Substance: LINACLOTIDE
     Indication: IRRITABLE BOWEL SYNDROME
     Dosage: 145 ?G, UNK
     Route: 065
     Dates: start: 2018
  2. INULIN FIBER [Suspect]
     Active Substance: INULIN
     Indication: IRRITABLE BOWEL SYNDROME
     Dosage: UNK
     Route: 065
     Dates: start: 2018
  3. LINZESS [Suspect]
     Active Substance: LINACLOTIDE
     Dosage: 290 ?G, UNK
     Route: 065
  4. INULIN FIBER [Suspect]
     Active Substance: INULIN
     Indication: CONSTIPATION
  5. BISACODYL. [Suspect]
     Active Substance: BISACODYL
     Indication: CONSTIPATION
     Dosage: UNK
     Route: 065
     Dates: start: 2018
  6. MIRALAX [Suspect]
     Active Substance: POLYETHYLENE GLYCOL 3350
     Indication: CONSTIPATION
     Dosage: UNK
     Route: 065
     Dates: start: 2018
  7. BISACODYL. [Suspect]
     Active Substance: BISACODYL
     Indication: IRRITABLE BOWEL SYNDROME
  8. MIRALAX [Suspect]
     Active Substance: POLYETHYLENE GLYCOL 3350
     Indication: IRRITABLE BOWEL SYNDROME

REACTIONS (5)
  - Back pain [Unknown]
  - Off label use [Unknown]
  - Abdominal pain lower [Unknown]
  - Drug ineffective [Unknown]
  - Sleep disorder [Unknown]
